FAERS Safety Report 7147534-7 (Version None)
Quarter: 2010Q4

REPORT INFORMATION
  Report Type: 
  Country: None (occurrence: None)
  Receive Date: 20101209
  Receipt Date: 20040921
  Transmission Date: 20110411
  Serious: Yes (Death)
  Sender: FDA-Public Use
  Company Number: US-ACTELION-A-US2004-07545

PATIENT

DRUGS (7)
  1. BOSENTAN TABLET 62.5 MG US [Suspect]
     Indication: PULMONARY ARTERIAL HYPERTENSION
     Dosage: 62.5 MG, BID
     Route: 048
     Dates: start: 20030717
  2. BUSPAR [Concomitant]
     Dosage: 5 MG, 1/2 TAB BID
  3. OXYGEN [Concomitant]
     Dosage: 6 L, UNK
  4. SEREVENT [Concomitant]
     Dosage: 2 PUFF, BID
  5. PRILOSEC [Concomitant]
     Dosage: 20 MG, TAKE 2 BEFORE DINNER
  6. PREDNISONE [Concomitant]
     Dosage: 20 MG, BID
  7. HYCODAN [Concomitant]
     Dosage: 1 TSP,  EVERY 2 HRS PRN

REACTIONS (4)
  - ALANINE AMINOTRANSFERASE INCREASED [None]
  - ASPARTATE AMINOTRANSFERASE INCREASED [None]
  - DEATH [None]
  - LIVER FUNCTION TEST ABNORMAL [None]
